FAERS Safety Report 7358153-1 (Version None)
Quarter: 2011Q1

REPORT INFORMATION
  Report Type: 
  Country: None (occurrence: None)
  Receive Date: 20110317
  Receipt Date: 20110314
  Transmission Date: 20110831
  Serious: Yes (Death)
  Sender: FDA-Public Use
  Company Number: US-ELI_LILLY_AND_COMPANY-US201102001615

PATIENT
  Sex: Male

DRUGS (1)
  1. ADCIRCA [Suspect]
     Dates: start: 20100916

REACTIONS (3)
  - INTENTIONAL DRUG MISUSE [None]
  - CARDIAC FAILURE CONGESTIVE [None]
  - OVERDOSE [None]
